FAERS Safety Report 5047004-6 (Version None)
Quarter: 2006Q2

REPORT INFORMATION
  Report Type: 
  Country: None (occurrence: None)
  Receive Date: 20060630
  Receipt Date: 20060619
  Transmission Date: 20061013
  Serious: No
  Sender: FDA-Public Use
  Company Number: E2090-00018-SPO-DE

PATIENT
  Age: 36 Year
  Sex: Female
  Weight: 49 kg

DRUGS (3)
  1. ZONEGRAN [Suspect]
     Indication: EPILEPSY
     Dosage: 100 MG, ORAL
     Route: 048
     Dates: start: 20060111, end: 20060510
  2. CONVULEX (VALPROIC ACID) [Concomitant]
  3. FRISIUM (CLOBAZAM) [Concomitant]

REACTIONS (3)
  - PRURITUS [None]
  - PURPURA [None]
  - RASH MACULAR [None]
